FAERS Safety Report 11054471 (Version 3)
Quarter: 2017Q2

REPORT INFORMATION
  Report Type: Spontaneous
  Country: CA (occurrence: CA)
  Receive Date: 20150422
  Receipt Date: 20170512
  Transmission Date: 20170829
  Serious: Yes (Other)
  Sender: FDA-Public Use
  Company Number: CA-ROCHE-1565698

PATIENT
  Age: 44 Year
  Sex: Female

DRUGS (13)
  1. AZATHIOPRINE. [Interacting]
     Active Substance: AZATHIOPRINE
     Route: 065
  2. RITUXAN [Suspect]
     Active Substance: RITUXIMAB
     Indication: PRODUCT USED FOR UNKNOWN INDICATION
     Route: 042
  3. ALLOPURINOL. [Interacting]
     Active Substance: ALLOPURINOL
     Indication: MYOPATHY
     Route: 048
  4. FEBUXOSTAT. [Interacting]
     Active Substance: FEBUXOSTAT
     Indication: IMMUNE-MEDIATED NECROTISING MYOPATHY
     Route: 058
  5. METHOTREXATE. [Concomitant]
     Active Substance: METHOTREXATE
  6. ALLOPURINOL. [Interacting]
     Active Substance: ALLOPURINOL
     Indication: IMMUNE-MEDIATED NECROTISING MYOPATHY
     Route: 048
  7. ALLOPURINOL. [Interacting]
     Active Substance: ALLOPURINOL
     Indication: OFF LABEL USE
     Route: 048
  8. MYCOPHENOLATE MOFETIL. [Interacting]
     Active Substance: MYCOPHENOLATE MOFETIL
     Indication: PRODUCT USED FOR UNKNOWN INDICATION
     Route: 058
  9. AZATHIOPRINE. [Interacting]
     Active Substance: AZATHIOPRINE
     Indication: MYOPATHY
     Route: 065
  10. METHOTREXATE. [Interacting]
     Active Substance: METHOTREXATE
     Indication: MYOPATHY
     Route: 058
  11. AZATHIOPRINE. [Interacting]
     Active Substance: AZATHIOPRINE
     Indication: OFF LABEL USE
     Route: 065
  12. AZATHIOPRINE. [Interacting]
     Active Substance: AZATHIOPRINE
     Indication: IMMUNE-MEDIATED NECROTISING MYOPATHY
     Route: 065
  13. AZATHIOPRINE. [Interacting]
     Active Substance: AZATHIOPRINE
     Route: 065

REACTIONS (8)
  - Myopathy [Recovering/Resolving]
  - Drug reaction with eosinophilia and systemic symptoms [Recovering/Resolving]
  - Pyrexia [Recovering/Resolving]
  - Drug interaction [Recovering/Resolving]
  - Drug ineffective [Unknown]
  - Hepatic mass [Recovering/Resolving]
  - Eosinophilia [Recovering/Resolving]
  - Product use issue [Unknown]
